FAERS Safety Report 9361484 (Version 2)
Quarter: 2013Q3

REPORT INFORMATION
  Report Type: Spontaneous
  Country: TR (occurrence: TR)
  Receive Date: 20130621
  Receipt Date: 20130715
  Transmission Date: 20140515
  Serious: Yes (Other)
  Sender: FDA-Public Use
  Company Number: TR-ELI_LILLY_AND_COMPANY-TR201306005830

PATIENT
  Age: 16 Year
  Sex: Female

DRUGS (2)
  1. FLUOXETINE HYDROCHLORIDE [Suspect]
     Indication: EPILEPSY
     Dosage: 20 MG, UNK
  2. LEVETIRACETAM [Concomitant]
     Indication: EPILEPSY
     Dosage: 1000 MG, QD

REACTIONS (2)
  - Opisthotonus [Recovered/Resolved]
  - Off label use [Recovered/Resolved]
